FAERS Safety Report 17749817 (Version 2)
Quarter: 2020Q2

REPORT INFORMATION
  Report Type: Report from Study
  Country: IT (occurrence: IT)
  Receive Date: 20200506
  Receipt Date: 20200602
  Transmission Date: 20200714
  Serious: Yes (Hospitalization)
  Sender: FDA-Public Use
  Company Number: IT-ACCORD-180965

PATIENT
  Age: 58 Year
  Sex: Male

DRUGS (8)
  1. CLOPIDOGREL [Suspect]
     Active Substance: CLOPIDOGREL BISULFATE
     Route: 048
     Dates: start: 20200207, end: 20200207
  2. XANAX [Suspect]
     Active Substance: ALPRAZOLAM
     Route: 048
     Dates: start: 20200207, end: 20200207
  3. PREDNISONE. [Suspect]
     Active Substance: PREDNISONE
     Route: 048
     Dates: start: 20200207, end: 20200207
  4. LEVOTHYROXINE. [Concomitant]
     Active Substance: LEVOTHYROXINE
     Indication: HYPOTHYROIDISM
  5. XANAX [Suspect]
     Active Substance: ALPRAZOLAM
     Route: 048
     Dates: start: 20200207, end: 20200207
  6. ENALAPRIL [Suspect]
     Active Substance: ENALAPRIL
     Route: 048
     Dates: start: 20200207, end: 20200207
  7. SIRDALUD [Suspect]
     Active Substance: TIZANIDINE
     Route: 048
     Dates: start: 20200207, end: 20200207
  8. DENIBAN [Suspect]
     Active Substance: AMISULPRIDE
     Route: 048
     Dates: start: 20200207, end: 20200207

REACTIONS (7)
  - Malaise [Recovering/Resolving]
  - Suicide attempt [Unknown]
  - Hypoventilation [Recovering/Resolving]
  - Drug abuse [Unknown]
  - Somnolence [Recovering/Resolving]
  - Confusional state [Recovering/Resolving]
  - Hypotension [Recovering/Resolving]

NARRATIVE: CASE EVENT DATE: 20200207
